FAERS Safety Report 5010081-2 (Version None)
Quarter: 2006Q2

REPORT INFORMATION
  Report Type: 
  Country: None (occurrence: None)
  Receive Date: 20060523
  Receipt Date: 20060510
  Transmission Date: 20061013
  Serious: Yes (Hospitalization)
  Sender: FDA-Public Use
  Company Number: 2006051391

PATIENT
  Age: 70 Year
  Sex: Male

DRUGS (12)
  1. SUTENT [Suspect]
     Indication: RENAL CELL CARCINOMA STAGE UNSPECIFIED
     Dosage: 50 MG (50 MG, CYCLIC), ORAL
     Route: 048
     Dates: start: 20060330
  2. BECLOMETHASONE (BECLOMETHASONE) [Concomitant]
  3. SALBUTAMOL (SALBUTAMOL) [Concomitant]
  4. ASPIRIN [Concomitant]
  5. GLICLAZIDE (GLICLAZIDE) [Concomitant]
  6. RAMIPRIL [Concomitant]
  7. BEZAFIBRATE (BEZAFIBRATE) [Concomitant]
  8. CO-CODAMOL (CODEINE PHOSPHATE, PARACETAMOL) [Concomitant]
  9. TRAMADOL HCL [Concomitant]
  10. CYCLIZINE (CYCLIZINE) [Concomitant]
  11. DOXAZOSIN (DOXAZOSIN) [Concomitant]
  12. HEPARIN [Concomitant]

REACTIONS (4)
  - LETHARGY [None]
  - MALAISE [None]
  - PNEUMONIA [None]
  - PYREXIA [None]
